FAERS Safety Report 7954987-0 (Version None)
Quarter: 2011Q4

REPORT INFORMATION
  Report Type: 
  Country: None (occurrence: None)
  Receive Date: 20111202
  Receipt Date: 20111124
  Transmission Date: 20120403
  Serious: Yes (Life-Threatening, Hospitalization)
  Sender: FDA-Public Use
  Company Number: PHHO2011PE019002

PATIENT
  Sex: Male
  Weight: 67.9 kg

DRUGS (10)
  1. FUROSEMIDE [Concomitant]
     Indication: CARDIAC FAILURE CONGESTIVE
     Dosage: 20 MG, QD
     Dates: start: 20110608, end: 20111108
  2. ENALAPRIL MALEATE [Suspect]
     Indication: CARDIAC FAILURE CHRONIC
     Dosage: DOUBLE BLIND
     Route: 048
     Dates: start: 20110906, end: 20111108
  3. VALSARTAN [Suspect]
     Indication: CARDIAC FAILURE CHRONIC
     Dosage: DOUBLE BLIND
     Route: 048
     Dates: start: 20110906, end: 20111108
  4. BLINDED NO TREATMENT RECEIVED [Suspect]
     Indication: CARDIAC FAILURE CHRONIC
     Dosage: DOUBLE BLIND
     Route: 048
     Dates: start: 20110906, end: 20111108
  5. WARFARIN SODIUM [Suspect]
     Indication: THROMBOSIS PROPHYLAXIS
     Dosage: 5 MG, QD
     Dates: start: 20110608
  6. TIMOLOL MALEATE [Concomitant]
     Indication: GLAUCOMA
     Dosage: 1 DRP, QD
     Dates: start: 20100420, end: 20111108
  7. BISOPROLOL FUMARATE [Concomitant]
     Indication: CARDIAC FAILURE CONGESTIVE
     Dosage: 1.25 MG, QD
     Dates: start: 20110608, end: 20111108
  8. SIMVASTATIN [Concomitant]
     Indication: DYSLIPIDAEMIA
     Dosage: 20 MG, QD
     Dates: start: 20110608, end: 20111108
  9. DORZOLAMIDE [Concomitant]
     Indication: GLAUCOMA
     Dosage: 1 DRP, BID
     Dates: start: 20100420, end: 20111108
  10. SPIRONOLACTONE [Concomitant]
     Indication: CARDIAC FAILURE CONGESTIVE
     Dosage: 25 MG, QD
     Dates: start: 20110608, end: 20111108

REACTIONS (1)
  - EROSIVE DUODENITIS [None]
